FAERS Safety Report 17353868 (Version 1)
Quarter: 2020Q1

REPORT INFORMATION
  Report Type: Spontaneous
  Country: CH (occurrence: CH)
  Receive Date: 20200131
  Receipt Date: 20200131
  Transmission Date: 20200409
  Serious: Yes (Life-Threatening, Hospitalization, Disabling, Other)
  Sender: FDA-Public Use
  Company Number: CH-GLAXOSMITHKLINE-CH2020015325

PATIENT
  Age: 27 Year
  Sex: Female

DRUGS (5)
  1. MONTELUKAST [Suspect]
     Active Substance: MONTELUKAST SODIUM
     Indication: ASTHMA
     Dosage: 10 MG, QD
     Route: 048
     Dates: start: 2017
  2. RELVAR ELLIPTA [Suspect]
     Active Substance: FLUTICASONE FUROATE\VILANTEROL TRIFENATATE
     Indication: ASTHMA
     Dosage: 184 ?G, QD
     Route: 055
     Dates: start: 2017
  3. BRUFEN RETARD [Suspect]
     Active Substance: IBUPROFEN
     Indication: PRODUCT USED FOR UNKNOWN INDICATION
     Dosage: 800 MG, BID
     Route: 065
     Dates: end: 20181127
  4. NUVARING [Suspect]
     Active Substance: ETHINYL ESTRADIOL\ETONOGESTREL
     Indication: CONTRACEPTION
     Dosage: NUVA RING VAGINAL SINCE 12/2018 .. STOP END OF 2019. - ~ PREVIOUSLY CA 2016/2017, NOT 11/2018
     Route: 067
     Dates: start: 201812, end: 201911
  5. MG 5-ORALEFF [Concomitant]
     Indication: PRODUCT USED FOR UNKNOWN INDICATION
     Dosage: 7.5 MMOL, QD
     Route: 048
     Dates: start: 201812

REACTIONS (4)
  - Basal ganglia haemorrhage [Not Recovered/Not Resolved]
  - Contraindicated product administered [Not Recovered/Not Resolved]
  - Migraine [Unknown]
  - Hypertension [Unknown]

NARRATIVE: CASE EVENT DATE: 201811
